FAERS Safety Report 12325476 (Version 2)
Quarter: 2016Q2

REPORT INFORMATION
  Report Type: Spontaneous
  Country: US (occurrence: US)
  Receive Date: 20160502
  Receipt Date: 20160603
  Transmission Date: 20160815
  Serious: No
  Sender: FDA-Public Use
  Company Number: PHEH2016US009989

PATIENT
  Sex: Female

DRUGS (1)
  1. EXFORGE [Suspect]
     Active Substance: AMLODIPINE BESYLATE\VALSARTAN
     Indication: HYPERTENSION
     Dosage: 1 DF (320 MG VALSARTAN AND 10 MG AMLODIPINE), UNK
     Route: 048

REACTIONS (4)
  - Medication residue present [Unknown]
  - Fall [Unknown]
  - Gastrointestinal motility disorder [Unknown]
  - Dizziness [Unknown]
